FAERS Safety Report 8786105 (Version 1)
Quarter: 2012Q4

REPORT INFORMATION
  Report Type: 
  Country: DE (occurrence: DE)
  Receive Date: 20120914
  Receipt Date: 20120914
  Transmission Date: 20130627
  Serious: Yes (Disabling)
  Sender: FDA-Public Use
  Company Number: DE-US-EMD SERONO, INC.-7139771

PATIENT
  Age: 59 None
  Sex: Male

DRUGS (2)
  1. REBIF [Suspect]
     Indication: MULTIPLE SCLEROSIS
     Route: 058
     Dates: start: 20120418, end: 20120816
  2. CITALOPRAM [Suspect]
     Indication: DEPRESSION
     Route: 048
     Dates: start: 201012

REACTIONS (4)
  - Hyperhidrosis [Not Recovered/Not Resolved]
  - Muscular weakness [Not Recovered/Not Resolved]
  - Blood pressure increased [Not Recovered/Not Resolved]
  - Fatigue [Unknown]
